FAERS Safety Report 17106298 (Version 1)
Quarter: 2019Q4

REPORT INFORMATION
  Report Type: Report from Study
  Country: IT (occurrence: IT)
  Receive Date: 20191203
  Receipt Date: 20191203
  Transmission Date: 20200122
  Serious: Yes (Hospitalization)
  Sender: FDA-Public Use
  Company Number: IT-PFIZER INC-2019513447

PATIENT
  Age: 41 Year
  Sex: Female

DRUGS (4)
  1. ALPRAZOLAM. [Suspect]
     Active Substance: ALPRAZOLAM
     Indication: DRUG ABUSE
     Dosage: 20 ML, TOTAL
     Route: 048
     Dates: start: 20190921, end: 20190922
  2. DICLOREUM [DICLOFENAC SODIUM] [Suspect]
     Active Substance: DICLOFENAC SODIUM
     Indication: DRUG ABUSE
     Dosage: 1.5 G, TOTAL
     Route: 048
     Dates: start: 20190921, end: 20190921
  3. TACHIPIRINA [Suspect]
     Active Substance: ACETAMINOPHEN
     Indication: DRUG ABUSE
     Dosage: 16 G, TOTAL
     Route: 048
     Dates: start: 20190921, end: 20190921
  4. PAROXETINE. [Interacting]
     Active Substance: PAROXETINE
     Indication: DRUG ABUSE
     Dosage: 240 MG, TOTAL
     Route: 048
     Dates: start: 20190921, end: 20190921

REACTIONS (4)
  - Drug abuse [Recovering/Resolving]
  - Sopor [Recovering/Resolving]
  - Drug interaction [Recovering/Resolving]
  - Mydriasis [Recovering/Resolving]

NARRATIVE: CASE EVENT DATE: 20190921
